FAERS Safety Report 6015848-X (Version None)
Quarter: 2008Q4

REPORT INFORMATION
  Report Type: 
  Country: None (occurrence: None)
  Receive Date: 20081222
  Receipt Date: 20081219
  Transmission Date: 20090506
  Serious: Yes (Hospitalization)
  Sender: FDA-Public Use
  Company Number: A0761146A

PATIENT
  Age: 53 Year
  Sex: Male

DRUGS (2)
  1. COMBIVIR [Suspect]
     Indication: HIV INFECTION
     Dosage: 1TABS TWICE PER DAY
     Route: 048
     Dates: start: 20081201
  2. EFAVIRENZ [Concomitant]
     Indication: HIV INFECTION

REACTIONS (4)
  - FATIGUE [None]
  - HEADACHE [None]
  - RASH PAPULAR [None]
  - RASH PRURITIC [None]
